FAERS Safety Report 23661101 (Version 1)
Quarter: 2024Q1

REPORT INFORMATION
  Report Type: Spontaneous
  Country: US (occurrence: US)
  Receive Date: 20240322
  Receipt Date: 20240322
  Transmission Date: 20240410
  Serious: No
  Sender: FDA-Public Use
  Company Number: US-ORGANON-O2402USA002851

PATIENT
  Age: 58 Year
  Sex: Female

DRUGS (1)
  1. ASMANEX [Suspect]
     Active Substance: MOMETASONE FUROATE
     Dosage: UNK UNK, BID
     Route: 065
     Dates: start: 20240226

REACTIONS (5)
  - Device malfunction [Unknown]
  - Product quality issue [Unknown]
  - Product outer packaging issue [Unknown]
  - Product label confusion [Unknown]
  - No adverse event [Unknown]

NARRATIVE: CASE EVENT DATE: 20240226
